FAERS Safety Report 9386078 (Version 2)
Quarter: 2013Q3

REPORT INFORMATION
  Report Type: Spontaneous
  Country: CN (occurrence: CN)
  Receive Date: 20130706
  Receipt Date: 20130808
  Transmission Date: 20140515
  Serious: No
  Sender: FDA-Public Use
  Company Number: CN-B.I. PHARMACEUTICALS,INC./RIDGEFIELD-2013-BI-19624YA

PATIENT
  Age: 32 Year
  Sex: Male

DRUGS (2)
  1. HARNAL [Suspect]
     Indication: DYSURIA
     Dosage: 0.6 MG
     Route: 048
     Dates: start: 20130625, end: 20130627
  2. HARNAL [Suspect]
     Indication: BENIGN PROSTATIC HYPERPLASIA

REACTIONS (2)
  - Aspermia [Recovered/Resolved]
  - Overdose [Recovered/Resolved]
